FAERS Safety Report 6415312-X (Version None)
Quarter: 2009Q4

REPORT INFORMATION
  Report Type: 
  Country: None (occurrence: None)
  Receive Date: 20091027
  Receipt Date: 20091014
  Transmission Date: 20100525
  Serious: Yes (Other)
  Sender: FDA-Public Use
  Company Number: PHHY2009GB43468

PATIENT
  Sex: Female

DRUGS (10)
  1. CLOZARIL [Suspect]
     Indication: BORDERLINE PERSONALITY DISORDER
     Dosage: 700 MG, QD
     Route: 048
     Dates: start: 19980202
  2. CHEMOTHERAPEUTICS NOS [Concomitant]
     Dosage: UNK
     Dates: start: 20091007
  3. FLUOXETINE [Concomitant]
     Indication: DEPRESSION
     Dosage: 20 MG DAILY
     Route: 048
  4. METFORMIN HCL [Concomitant]
     Indication: DIABETES MELLITUS
     Dosage: 2 G DAILY
     Route: 048
  5. SIMVASTATIN [Concomitant]
     Indication: BLOOD CHOLESTEROL INCREASED
     Dosage: 20 MG DAILY
  6. LANSOPRAZOLE [Concomitant]
     Dosage: 15 MG DAILY
     Route: 048
  7. FERROUS SULFATE TAB [Concomitant]
     Indication: ANAEMIA
     Dosage: 200 MG DAILY
     Route: 048
  8. VITAMIN B COMPLEX CAP [Concomitant]
     Dosage: 1 TABLET DAILY
     Route: 048
  9. INSULIN MIXTARD [Concomitant]
     Indication: DIABETES MELLITUS
     Dosage: 30 INJECTIONS
  10. LACTULOSE [Concomitant]
     Indication: CONSTIPATION
     Dosage: 20 MLS DAILY
     Route: 048

REACTIONS (1)
  - BREAST CANCER STAGE II [None]
